FAERS Safety Report 8697810 (Version 3)
Quarter: 2012Q4

REPORT INFORMATION
  Report Type: 
  Country: US (occurrence: US)
  Receive Date: 20120801
  Receipt Date: 20120919
  Transmission Date: 20130627
  Serious: Yes (Other)
  Sender: FDA-Public Use
  Company Number: US-PFIZER INC-2012182949

PATIENT
  Age: 33 Year
  Sex: Female
  Weight: 58.96 kg

DRUGS (5)
  1. PRISTIQ [Suspect]
     Dosage: 50 mg, daily
     Route: 048
     Dates: start: 201108, end: 201201
  2. PRISTIQ [Suspect]
     Dosage: UNK
     Route: 048
     Dates: start: 2012
  3. VIIBRYD [Suspect]
     Dosage: UNK
     Dates: start: 201201, end: 201201
  4. PREVACID [Concomitant]
     Indication: GASTROOESOPHAGEAL REFLUX DISEASE
     Dosage: 30 mg, 2x/day
  5. BENTYL [Concomitant]
     Indication: GASTROOESOPHAGEAL REFLUX DISEASE
     Dosage: 20 mg, 2x/day

REACTIONS (26)
  - Suicidal ideation [Recovered/Resolved]
  - Depression [Recovered/Resolved]
  - Cognitive disorder [Unknown]
  - Drug dose omission [Unknown]
  - Amnesia [Unknown]
  - Withdrawal syndrome [Recovered/Resolved]
  - Activities of daily living impaired [Recovered/Resolved]
  - Nervous system disorder [Recovered/Resolved]
  - Irritability [Recovered/Resolved]
  - Confusional state [Recovered/Resolved]
  - Emotional disorder [Recovered/Resolved]
  - Crying [Recovered/Resolved]
  - Abnormal behaviour [Unknown]
  - Feeling abnormal [Recovered/Resolved]
  - Malaise [Recovered/Resolved]
  - Paranoia [Unknown]
  - Agoraphobia [Unknown]
  - Anxiety [Unknown]
  - Arrhythmia [Unknown]
  - Drug ineffective [Unknown]
  - Nausea [Recovered/Resolved]
  - Diarrhoea [Recovered/Resolved]
  - Dizziness [Recovered/Resolved]
  - Palpitations [Unknown]
  - Tremor [Unknown]
  - Tinnitus [Unknown]
